FAERS Safety Report 19125759 (Version 1)
Quarter: 2021Q2

REPORT INFORMATION
  Report Type: Spontaneous
  Country: US (occurrence: US)
  Receive Date: 20210412
  Receipt Date: 20210412
  Transmission Date: 20210717
  Serious: No
  Sender: FDA-Public Use
  Company Number: US-INTRA-CELLULAR THERAPIES, INC.-2021ICT00052

PATIENT
  Age: 49 Year
  Sex: Male
  Weight: 92.97 kg

DRUGS (2)
  1. CAPLYTA [Suspect]
     Active Substance: LUMATEPERONE
     Indication: SCHIZOPHRENIA
     Dosage: 42 MG, 1X/DAY WITH FOOD
     Route: 048
     Dates: start: 20201027, end: 20201209
  2. CAPLYTA [Suspect]
     Active Substance: LUMATEPERONE
     Indication: PARANOIA

REACTIONS (1)
  - Drug ineffective [Recovered/Resolved]

NARRATIVE: CASE EVENT DATE: 20201027
